FAERS Safety Report 6662411-3 (Version None)
Quarter: 2010Q1

REPORT INFORMATION
  Report Type: 
  Country: None (occurrence: None)
  Receive Date: 20100329
  Receipt Date: 20100311
  Transmission Date: 20100710
  Serious: Yes (Disabling)
  Sender: FDA-Public Use
  Company Number: US-1181278

PATIENT
  Sex: Female
  Weight: 70.7611 kg

DRUGS (3)
  1. VIGAMOX [Suspect]
     Indication: PROPHYLAXIS
     Dosage: (TID OPHTHALMIC)
     Route: 047
     Dates: start: 20100306
  2. NEVANAC [Suspect]
     Indication: PROPHYLAXIS
     Dosage: (TID OPTHALMIC)
     Route: 047
     Dates: start: 20100306
  3. DIGOXIN [Concomitant]

REACTIONS (4)
  - BLINDNESS [None]
  - EYE IRRITATION [None]
  - EYE PAIN [None]
  - VISUAL ACUITY REDUCED [None]
